FAERS Safety Report 7984876-7 (Version None)
Quarter: 2011Q4

REPORT INFORMATION
  Report Type: 
  Country: None (occurrence: None)
  Receive Date: 20111216
  Receipt Date: 20111005
  Transmission Date: 20120403
  Serious: No
  Sender: FDA-Public Use
  Company Number: US-ALLERGAN-1112975US

PATIENT
  Age: 36 Year
  Sex: Female

DRUGS (3)
  1. OTC EYE DROPS [Concomitant]
     Indication: DRY EYE
     Dosage: UNK
  2. VARIED EYE AND MAKE UP PRODUCTS [Concomitant]
     Dosage: UNK
  3. LATISSE [Suspect]
     Indication: GROWTH OF EYELASHES
     Dosage: UNK
     Route: 061
     Dates: start: 20110826, end: 20110910

REACTIONS (4)
  - DERMATITIS CONTACT [None]
  - EYELID OEDEMA [None]
  - ERYTHEMA OF EYELID [None]
  - DRY EYE [None]
